FAERS Safety Report 20553520 (Version 1)
Quarter: 2022Q1

REPORT INFORMATION
  Report Type: Spontaneous
  Country: NL (occurrence: NL)
  Receive Date: 20220304
  Receipt Date: 20220304
  Transmission Date: 20220424
  Serious: Yes (Other)
  Sender: FDA-Public Use
  Company Number: None

PATIENT
  Age: 73 Year
  Sex: Male
  Weight: 75 kg

DRUGS (1)
  1. CLOPIDOGREL [Suspect]
     Active Substance: CLOPIDOGREL BISULFATE
     Dosage: 75 MILLIGRAM DAILY; THERAPY END DATE ASKU;   BRAND NAME NOT SPECIFIED
     Dates: start: 20210427

REACTIONS (5)
  - Polymyalgia rheumatica [Recovering/Resolving]
  - Headache [Recovered/Resolved]
  - Fatigue [Recovering/Resolving]
  - Malaise [Recovering/Resolving]
  - Pyrexia [Recovered/Resolved]

NARRATIVE: CASE EVENT DATE: 20210522
